FAERS Safety Report 12232482 (Version 1)
Quarter: 2016Q2

REPORT INFORMATION
  Report Type: Spontaneous
  Country: US (occurrence: US)
  Receive Date: 20160401
  Receipt Date: 20160401
  Transmission Date: 20160815
  Serious: Yes (Other)
  Sender: FDA-Public Use
  Company Number: PHHY2016US042051

PATIENT
  Age: 84 Year
  Sex: Male

DRUGS (3)
  1. TRIAMCINOLONE [Concomitant]
     Active Substance: TRIAMCINOLONE
     Indication: MYCOSIS FUNGOIDES
     Dosage: 10 MG/ML, UNK
     Route: 026
  2. CLOBETASOL [Suspect]
     Active Substance: CLOBETASOL
     Indication: MYCOSIS FUNGOIDES
     Dosage: UNK UNK, QW4
     Route: 065
  3. BEXAROTENE. [Suspect]
     Active Substance: BEXAROTENE
     Indication: MYCOSIS FUNGOIDES
     Route: 065

REACTIONS (1)
  - Drug resistance [Unknown]
